FAERS Safety Report 4950206-8 (Version None)
Quarter: 2006Q1

REPORT INFORMATION
  Report Type: 
  Country: None (occurrence: None)
  Receive Date: 20060315
  Receipt Date: 20060303
  Transmission Date: 20060701
  Serious: Yes (Other)
  Sender: FDA-Public Use
  Company Number: GXKR2006NL01305

PATIENT
  Age: 64 Year
  Sex: Female

DRUGS (2)
  1. FUROSEMIDE [Suspect]
     Indication: POLYURIA
     Dosage: 250 MG, BID, ORAL
     Route: 047
  2. SEVELAMER(SEVELAMER) [Suspect]
     Indication: HYPERPHOSPHATAEMIA
     Dosage: 3200MG/DAY, ORAL
     Route: 048

REACTIONS (2)
  - ANURIA [None]
  - DRUG INTERACTION [None]
